FAERS Safety Report 23256528 (Version 3)
Quarter: 2024Q1

REPORT INFORMATION
  Report Type: Report from Study
  Country: US (occurrence: None)
  Receive Date: 20231204
  Receipt Date: 20240117
  Transmission Date: 20240409
  Serious: Yes (Hospitalization, Other)
  Sender: FDA-Public Use
  Company Number: 2023A272495

PATIENT
  Age: 28350 Day
  Sex: Female
  Weight: 60.8 kg

DRUGS (2)
  1. BRILINTA [Suspect]
     Active Substance: TICAGRELOR
     Indication: Complication associated with device
     Route: 048
     Dates: start: 20220719
  2. ROSUVASTATIN [Suspect]
     Active Substance: ROSUVASTATIN
     Route: 048

REACTIONS (21)
  - Fall [Recovering/Resolving]
  - Skin laceration [Recovering/Resolving]
  - Product dose omission issue [Recovered/Resolved]
  - Type 2 diabetes mellitus [Unknown]
  - Dyslipidaemia [Unknown]
  - Obesity [Unknown]
  - Anaemia [Unknown]
  - Essential hypertension [Unknown]
  - Hypertensive heart disease [Unknown]
  - Gastrooesophageal reflux disease [Unknown]
  - Syncope [Unknown]
  - Oedema peripheral [Unknown]
  - Carotid bruit [Unknown]
  - Cardiac stress test abnormal [Unknown]
  - Carotid artery stenosis [Unknown]
  - Peripheral artery aneurysm [Unknown]
  - Chest discomfort [Unknown]
  - Hypertension [Unknown]
  - Dyspnoea exertional [Unknown]
  - Arthralgia [Unknown]
  - Back pain [Unknown]

NARRATIVE: CASE EVENT DATE: 20220826
